FAERS Safety Report 16073521 (Version 1)
Quarter: 2019Q1

REPORT INFORMATION
  Report Type: Spontaneous
  Country: GB (occurrence: GB)
  Receive Date: 20190314
  Receipt Date: 20190314
  Transmission Date: 20190418
  Serious: Yes (Other)
  Sender: FDA-Public Use
  Company Number: GB-PFIZER INC-2019107123

PATIENT
  Sex: Female

DRUGS (4)
  1. CALCIUM FOLINATE [Suspect]
     Active Substance: LEUCOVORIN CALCIUM
     Indication: COLORECTAL CANCER METASTATIC
     Dosage: CYCLIC (SIX CYCLES, DOSE TITRATION)
     Dates: start: 201712
  2. FLUOROURACIL. [Suspect]
     Active Substance: FLUOROURACIL
     Indication: COLORECTAL CANCER METASTATIC
     Dosage: CYCLIC (SIX CYCLES, DOSE TITRATION)
     Dates: start: 201712
  3. VECTIBIX [Suspect]
     Active Substance: PANITUMUMAB
     Indication: COLORECTAL CANCER METASTATIC
     Dosage: CYCLIC (SIX CYCLES, DOSE TITRATION)
     Dates: start: 201712
  4. IRINOTECAN HCL [Suspect]
     Active Substance: IRINOTECAN HYDROCHLORIDE
     Indication: COLORECTAL CANCER METASTATIC
     Dosage: CYCLIC (SIX CYCLES, DOSE TITRATION)
     Dates: start: 201712

REACTIONS (25)
  - Nausea [Unknown]
  - Decreased appetite [Unknown]
  - Visual impairment [Unknown]
  - Rash pustular [Unknown]
  - Self esteem decreased [Unknown]
  - Photosensitivity reaction [Unknown]
  - Alopecia [Unknown]
  - Eye pain [Unknown]
  - Osteosclerosis [Unknown]
  - Dysgeusia [Unknown]
  - Rash [Unknown]
  - Psychiatric symptom [Unknown]
  - Fatigue [Unknown]
  - Diarrhoea [Unknown]
  - Gastrointestinal disorder [Unknown]
  - Skin fissures [Unknown]
  - Neutropenia [Unknown]
  - Cystitis [Unknown]
  - Pain of skin [Unknown]
  - Paronychia [Unknown]
  - Abdominal pain [Unknown]
  - Erythema [Unknown]
  - Stomatitis [Unknown]
  - Dry skin [Unknown]
  - Hair growth abnormal [Unknown]
